FAERS Safety Report 14906203 (Version 1)
Quarter: 2018Q2

REPORT INFORMATION
  Report Type: Spontaneous
  Country: US (occurrence: US)
  Receive Date: 20180517
  Receipt Date: 20180517
  Transmission Date: 20180711
  Serious: No
  Sender: FDA-Public Use
  Company Number: US-SA-2018SA093986

PATIENT
  Age: 52 Year
  Sex: Male

DRUGS (3)
  1. LANTUS SOLOSTAR [Suspect]
     Active Substance: INSULIN GLARGINE
     Indication: TYPE 2 DIABETES MELLITUS
     Dosage: DOSE:6 UNIT(S)
     Route: 051
  2. SOLOSTAR [Suspect]
     Active Substance: DEVICE
  3. NOVOLOG [Concomitant]
     Active Substance: INSULIN ASPART
     Dosage: DOSE:5 UNIT(S)
     Route: 065

REACTIONS (4)
  - Malaise [Unknown]
  - Panic attack [Unknown]
  - Dyspnoea [Unknown]
  - Burning sensation [Unknown]
